FAERS Safety Report 26158180 (Version 1)
Quarter: 2025Q4

REPORT INFORMATION
  Report Type: Spontaneous
  Country: US (occurrence: None)
  Receive Date: 20251215
  Receipt Date: 20251215
  Transmission Date: 20260117
  Serious: Yes (Death)
  Sender: FDA-CTU
  Company Number: None

PATIENT
  Age: 75 Year
  Sex: Male
  Weight: 67.95 kg

DRUGS (11)
  1. POMALYST [Suspect]
     Active Substance: POMALIDOMIDE
     Indication: Plasma cell myeloma
     Dosage: FREQUENCY : DAILY;
     Route: 048
     Dates: start: 20250808, end: 20251127
  2. tramadol 25 mg tablet [Concomitant]
  3. ACYCLOVIR [Concomitant]
     Active Substance: ACYCLOVIR
  4. cholecalciferol (vitamin D3) 50 mcg (2,000 unit) capsule [Concomitant]
  5. DEXAMETHASONE [Concomitant]
     Active Substance: DEXAMETHASONE
  6. fentanyl 12 mcg/hr transdermal patch [Concomitant]
  7. ferrous sulfate 134 mg (27 mg iron) tablet [Concomitant]
  8. MONTELUKAST SODIUM [Concomitant]
     Active Substance: MONTELUKAST SODIUM
  9. morphine 15 mg immediate release tablet [Concomitant]
  10. pantoprazole 20 mg tablet,delayed release [Concomitant]
  11. SODIUM CHLORIDE 1 GM TABLET [Concomitant]

REACTIONS (1)
  - Death [None]

NARRATIVE: CASE EVENT DATE: 20251127
